FAERS Safety Report 5021652-1 (Version None)
Quarter: 2006Q2

REPORT INFORMATION
  Report Type: 
  Country: None (occurrence: None)
  Receive Date: 20060608
  Receipt Date: 20060604
  Transmission Date: 20061013
  Serious: Yes (Hospitalization, Other)
  Sender: FDA-Public Use
  Company Number: US-MERCK-0606USA00766

PATIENT
  Age: 60 Year
  Sex: Male

DRUGS (1)
  1. VYTORIN [Suspect]
     Route: 048

REACTIONS (4)
  - PHARYNGEAL OEDEMA [None]
  - RASH [None]
  - SWELLING FACE [None]
  - URTICARIA [None]
